FAERS Safety Report 9455798 (Version 1)
Quarter: 2013Q3

REPORT INFORMATION
  Report Type: Spontaneous
  Country: US (occurrence: US)
  Receive Date: 20130813
  Receipt Date: 20130813
  Transmission Date: 20140515
  Serious: Yes (Hospitalization, Other)
  Sender: FDA-Public Use
  Company Number: US-ENDO PHARMACEUTICALS INC.-OPCR20130316

PATIENT
  Age: 36 Year
  Sex: Female

DRUGS (2)
  1. OPANA ER [Suspect]
     Indication: DRUG ABUSE
     Dosage: UNK
     Route: 042
  2. MORPHINE SULFATE ER [Suspect]
     Indication: DRUG ABUSE
     Dosage: UNK
     Route: 042

REACTIONS (5)
  - Thrombotic thrombocytopenic purpura [Unknown]
  - Drug abuse [Unknown]
  - Wrong technique in drug usage process [Unknown]
  - Incorrect route of drug administration [Unknown]
  - Withdrawal syndrome [Unknown]
